FAERS Safety Report 7897812 (Version 3)
Quarter: 2012Q4

REPORT INFORMATION
  Report Type: 
  Country: US (occurrence: US)
  Receive Date: 20110413
  Receipt Date: 20121025
  Transmission Date: 20130627
  Serious: Yes (Hospitalization, Other)
  Sender: FDA-Public Use
  Company Number: US-BAYER-2011-031571

PATIENT
  Age: 25 Year
  Sex: Female

DRUGS (7)
  1. YAZ [Suspect]
  2. YASMIN [Suspect]
  3. AMOXICILLIN [Concomitant]
     Indication: TOOTH INFECTION
  4. CRESTOR [Concomitant]
     Dosage: 20 mg, UNK
     Route: 048
  5. DILANTIN [Concomitant]
     Dosage: 200 mg, UNK
     Route: 048
  6. SOLU-MEDROL [Concomitant]
     Dosage: 250 mg, every 8 hour
     Route: 042
  7. NEXIUM [Concomitant]
     Dosage: 40 mg, BID

REACTIONS (6)
  - Cerebrovascular accident [None]
  - Thrombosis [None]
  - Injury [Unknown]
  - Pain [Unknown]
  - Anxiety [Unknown]
  - Deformity [Unknown]
